FAERS Safety Report 6371377-5 (Version None)
Quarter: 2009Q3

REPORT INFORMATION
  Report Type: 
  Country: None (occurrence: None)
  Receive Date: 20090923
  Receipt Date: 20090910
  Transmission Date: 20100115
  Serious: Yes (Other)
  Sender: FDA-Public Use
  Company Number: NL-PFIZER INC-2009267356

PATIENT
  Age: 34 Year

DRUGS (1)
  1. CHAMPIX [Suspect]
     Indication: SMOKING CESSATION THERAPY
     Dosage: UNK MG, UNK
     Route: 048
     Dates: start: 20090501, end: 20090501

REACTIONS (4)
  - ARTHRALGIA [None]
  - OEDEMA [None]
  - PARAESTHESIA [None]
  - PSYCHOTIC DISORDER [None]
